FAERS Safety Report 7715318-4 (Version None)
Quarter: 2011Q3

REPORT INFORMATION
  Report Type: 
  Country: None (occurrence: None)
  Receive Date: 20110829
  Receipt Date: 20110401
  Transmission Date: 20111222
  Serious: No
  Sender: FDA-Public Use
  Company Number: US-BAYER-2011-028835

PATIENT
  Sex: Female

DRUGS (2)
  1. MIRENA [Suspect]
     Dosage: 20 ?G/D, CONT
     Dates: start: 20101001
  2. CONTRACEPTIVES NOS [Concomitant]
     Indication: CONTRACEPTION

REACTIONS (3)
  - METRORRHAGIA [None]
  - MENORRHAGIA [None]
  - AMENORRHOEA [None]
